FAERS Safety Report 9430250 (Version 4)
Quarter: 2013Q4

REPORT INFORMATION
  Report Type: Spontaneous
  Country: US (occurrence: US)
  Receive Date: 20130730
  Receipt Date: 20131011
  Transmission Date: 20140711
  Serious: Yes (Hospitalization)
  Sender: FDA-Public Use
  Company Number: US-GLAXOSMITHKLINE-A1001864A

PATIENT
  Age: 55 Year
  Sex: Female
  Weight: 118.2 kg

DRUGS (2)
  1. AVANDIA [Suspect]
     Indication: DIABETES MELLITUS
     Dosage: 4MG TWICE PER DAY
     Route: 048
     Dates: start: 200611, end: 200809
  2. AVANDAMET [Suspect]
     Indication: DIABETES MELLITUS
     Dates: start: 200807

REACTIONS (4)
  - Myocardial infarction [Unknown]
  - Coronary artery disease [Unknown]
  - Angina pectoris [Unknown]
  - Cardiac failure congestive [Unknown]
